FAERS Safety Report 5407345-7 (Version None)
Quarter: 2007Q3

REPORT INFORMATION
  Report Type: 
  Country: None (occurrence: None)
  Receive Date: 20070802
  Receipt Date: 20070718
  Transmission Date: 20080115
  Serious: Yes (Life-Threatening, Hospitalization)
  Sender: FDA-Public Use
  Company Number: 2007001400

PATIENT
  Age: 49 Year
  Sex: Male

DRUGS (2)
  1. MACUGEN [Suspect]
     Indication: MACULAR DEGENERATION
     Dosage: 0.3 MG, INTRA-VITREAL
     Dates: start: 20061218, end: 20070403
  2. DISGREN (TRIFLUSAL) [Concomitant]

REACTIONS (1)
  - CEREBRAL HAEMORRHAGE [None]
